FAERS Safety Report 15959105 (Version 4)
Quarter: 2019Q2

REPORT INFORMATION
  Report Type: Spontaneous
  Country: US (occurrence: US)
  Receive Date: 20190214
  Receipt Date: 20190412
  Transmission Date: 20190711
  Serious: No
  Sender: FDA-Public Use
  Company Number: US-BIOGEN-2019BI00691004

PATIENT
  Age: 52 Year
  Sex: Female

DRUGS (1)
  1. TYSABRI [Suspect]
     Active Substance: NATALIZUMAB
     Indication: MULTIPLE SCLEROSIS
     Dosage: INFUSED OVER 1 HOUR
     Route: 050
     Dates: start: 20171128

REACTIONS (6)
  - Gastric disorder [Unknown]
  - Reactive gastropathy [Unknown]
  - Duodenitis [Unknown]
  - Prescribed underdose [Unknown]
  - Duodenal neoplasm [Not Recovered/Not Resolved]
  - Benign small intestinal neoplasm [Unknown]

NARRATIVE: CASE EVENT DATE: 201901
